FAERS Safety Report 14755245 (Version 1)
Quarter: 2018Q2

REPORT INFORMATION
  Report Type: Spontaneous
  Country: US (occurrence: US)
  Receive Date: 20180413
  Receipt Date: 20180413
  Transmission Date: 20180711
  Serious: Yes (Other)
  Sender: FDA-Public Use
  Company Number: US-BION-006195

PATIENT
  Age: 41 Year
  Sex: Male
  Weight: 107 kg

DRUGS (6)
  1. CLONAZEPAM. [Concomitant]
     Active Substance: CLONAZEPAM
  2. ALEVE [Suspect]
     Active Substance: NAPROXEN SODIUM
     Indication: PAIN
     Dosage: 03 DF AT ONE TIME
     Route: 048
     Dates: start: 201703
  3. CLONIDINE. [Concomitant]
     Active Substance: CLONIDINE
  4. SEROQUEL [Concomitant]
     Active Substance: QUETIAPINE FUMARATE
  5. CARISOPRODOL. [Concomitant]
     Active Substance: CARISOPRODOL
  6. SIMVASTATIN. [Concomitant]
     Active Substance: SIMVASTATIN

REACTIONS (6)
  - Haematochezia [Not Recovered/Not Resolved]
  - Dysgeusia [Unknown]
  - Expired product administered [Not Recovered/Not Resolved]
  - Product physical issue [Not Recovered/Not Resolved]
  - Poor quality drug administered [Not Recovered/Not Resolved]
  - Drug prescribing error [Not Recovered/Not Resolved]

NARRATIVE: CASE EVENT DATE: 201703
